FAERS Safety Report 19426299 (Version 1)
Quarter: 2021Q2

REPORT INFORMATION
  Report Type: Spontaneous
  Country: FR (occurrence: FR)
  Receive Date: 20210617
  Receipt Date: 20210617
  Transmission Date: 20210717
  Serious: Yes (Other)
  Sender: FDA-Public Use
  Company Number: FR-AUROBINDO-AUR-APL-2021-024574

PATIENT
  Sex: Female

DRUGS (2)
  1. IBUPROFEN 200MG [Suspect]
     Active Substance: IBUPROFEN
     Indication: MENOMETRORRHAGIA
     Dosage: UNK
     Route: 065
  2. G?CSF [Concomitant]
     Active Substance: GRANULOCYTE COLONY-STIMULATING FACTOR NOS
     Indication: PRODUCT USED FOR UNKNOWN INDICATION
     Dosage: UNK
     Route: 065

REACTIONS (2)
  - Pancytopenia [Recovered/Resolved]
  - Product use in unapproved indication [Unknown]
